FAERS Safety Report 13937162 (Version 8)
Quarter: 2023Q2

REPORT INFORMATION
  Report Type: Spontaneous
  Country: PL (occurrence: PL)
  Receive Date: 20170905
  Receipt Date: 20230505
  Transmission Date: 20230722
  Serious: Yes (Hospitalization, Disabling, Other)
  Sender: FDA-Public Use
  Company Number: PHHY2017PL129784

PATIENT
  Age: 50 Year
  Sex: Female

DRUGS (13)
  1. BISOPROLOL FUMARATE [Suspect]
     Active Substance: BISOPROLOL FUMARATE
     Indication: Product used for unknown indication
     Dosage: UNK
     Route: 065
  2. ATORVASTATIN [Suspect]
     Active Substance: ATORVASTATIN
     Indication: Hypercholesterolaemia
     Dosage: 10 MG, QD (BEDTIME), DAILY
     Route: 065
  3. ZOLPIDEM [Suspect]
     Active Substance: ZOLPIDEM TARTRATE
     Indication: Depression
     Dosage: 10 MG, QD, QHS (BEFORE BED TIME, DRUG NO LONG)
     Route: 065
  4. CLARITHROMYCIN [Suspect]
     Active Substance: CLARITHROMYCIN
     Indication: Product used for unknown indication
     Dosage: 250 MG (TWO 10 DAY COURSES)
     Route: 065
  5. CLARITHROMYCIN [Suspect]
     Active Substance: CLARITHROMYCIN
     Dosage: (BEDTIME), TOTAL DRUG DURATION: 2 X 10 DAYS, UNKNOWN DOSE DAILY
     Route: 065
  6. SERTRALINE [Suspect]
     Active Substance: SERTRALINE HYDROCHLORIDE
     Indication: Depression
     Dosage: 50 MG, QD (IN THE MORNING)
     Route: 065
  7. ESCITALOPRAM [Suspect]
     Active Substance: ESCITALOPRAM OXALATE
     Indication: Depression
     Dosage: 10 MG, UNK
     Route: 048
  8. TRAMADOL [Suspect]
     Active Substance: TRAMADOL
     Indication: Arthralgia
     Dosage: TRAMADOL IN COMBINATION WITH MELOXICAM FOR ABOUT TWO YEARS AGO
     Route: 065
  9. TRAMADOL [Suspect]
     Active Substance: TRAMADOL
     Indication: Osteoarthritis
     Dosage: UNK
     Route: 065
  10. MELOXICAM [Suspect]
     Active Substance: MELOXICAM
     Indication: Arthralgia
     Dosage: TRAMADOL IN COMBINATION WITH MELOXICAM, FOR ABOUT TWO YEARS AGO
     Route: 048
  11. MELOXICAM [Suspect]
     Active Substance: MELOXICAM
     Indication: Osteoarthritis
  12. DOXEPIN [Suspect]
     Active Substance: DOXEPIN
     Indication: Depression
     Dosage: 25 MG, QD, QHS
     Route: 065
  13. PERINDOPRIL [Suspect]
     Active Substance: PERINDOPRIL
     Indication: Hypertension
     Dosage: UNK
     Route: 065

REACTIONS (5)
  - Loss of consciousness [Recovered/Resolved]
  - Tinnitus [Recovered/Resolved]
  - Condition aggravated [Recovering/Resolving]
  - Drug ineffective [Unknown]
  - Suicide attempt [Recovered/Resolved]
